FAERS Safety Report 9168935 (Version 2)
Quarter: 2013Q2

REPORT INFORMATION
  Report Type: Report from Study
  Country: BR (occurrence: BR)
  Receive Date: 20130318
  Receipt Date: 20130412
  Transmission Date: 20140414
  Serious: Yes (Hospitalization, Other)
  Sender: FDA-Public Use
  Company Number: BR-ROCHE-1202580

PATIENT
  Age: 42 Year
  Sex: Male
  Weight: 82 kg

DRUGS (6)
  1. MABTHERA [Suspect]
     Indication: RHEUMATOID ARTHRITIS
     Route: 042
  2. RANITIDINE [Concomitant]
     Route: 065
  3. NIMESULIDE [Concomitant]
     Route: 065
  4. KETOPROFEN [Concomitant]
     Route: 065
  5. IMIPRAMINE [Concomitant]
     Route: 065
  6. CYCLOBENZAPRINE [Concomitant]
     Route: 065

REACTIONS (4)
  - Acute myocardial infarction [Recovered/Resolved]
  - Acute myocardial infarction [Recovered/Resolved]
  - Myocardial infarction [Not Recovered/Not Resolved]
  - Myocardial oedema [Not Recovered/Not Resolved]
